FAERS Safety Report 24687561 (Version 2)
Quarter: 2024Q4

REPORT INFORMATION
  Report Type: Spontaneous
  Country: TH (occurrence: TH)
  Receive Date: 20241202
  Receipt Date: 20241210
  Transmission Date: 20250115
  Serious: Yes (Death, Hospitalization, Other)
  Sender: MERCK
  Company Number: TH-009507513-2411THA012431

PATIENT
  Age: 85 Year
  Sex: Male

DRUGS (1)
  1. KEYTRUDA [Suspect]
     Active Substance: PEMBROLIZUMAB
     Indication: Metastatic malignant melanoma
     Dosage: 200 MILLIGRAM, Q3W
     Route: 042
     Dates: start: 202410

REACTIONS (5)
  - Pneumonia [Unknown]
  - Pneumonitis [Unknown]
  - Renal function test abnormal [Unknown]
  - Hypotension [Unknown]
  - Malignant neoplasm progression [Fatal]

NARRATIVE: CASE EVENT DATE: 20240101
